FAERS Safety Report 4894460-X (Version None)
Quarter: 2006Q1

REPORT INFORMATION
  Report Type: 
  Country: None (occurrence: None)
  Receive Date: 20060118
  Receipt Date: 20060105
  Transmission Date: 20060701
  Serious: Yes (Other)
  Sender: FDA-Public Use
  Company Number: 200609743

PATIENT
  Age: 14 Year
  Sex: Male

DRUGS (14)
  1. PANGLOBULIN [Suspect]
     Indication: APLASIA PURE RED CELL
     Dosage: 1 G/KG B.W. DAILY IV
     Route: 042
  2. PANGLOBULIN [Suspect]
     Indication: ERYTHEMA INFECTIOSUM
     Dosage: 1 G/KG B.W. DAILY IV
     Route: 042
  3. BASILIXIMAB [Concomitant]
  4. METHYLPREDNISOLONE [Concomitant]
  5. PREDNISONE [Concomitant]
  6. TACROLIMUS [Concomitant]
  7. EPOGEN [Concomitant]
  8. IRON [Concomitant]
  9. GANCICLOVIR [Concomitant]
  10. SULFAMETHOXAZOLE + TRIMETHOPRIM [Concomitant]
  11. NYSTATIN [Concomitant]
  12. NIFEDIPINE [Concomitant]
  13. FAMOTIDINE [Concomitant]
  14. RED BLOOD CELLS [Concomitant]

REACTIONS (1)
  - RENAL FAILURE ACUTE [None]
